FAERS Safety Report 9477030 (Version 6)
Quarter: 2014Q2

REPORT INFORMATION
  Report Type: Spontaneous
  Country: JP (occurrence: JP)
  Receive Date: 20130826
  Receipt Date: 20140416
  Transmission Date: 20141212
  Serious: Yes (Hospitalization, Other)
  Sender: FDA-Public Use
  Company Number: JP-PFIZER INC-2013241630

PATIENT
  Age: 89 Year
  Sex: Male
  Weight: 40.7 kg

DRUGS (4)
  1. UNASYN-S [Suspect]
     Indication: PNEUMONIA
     Dosage: 3 G, 3X/DAY
     Route: 041
     Dates: start: 20130816, end: 20130820
  2. CONIEL [Concomitant]
     Dosage: 4 MG, 1X/DAY
     Route: 048
     Dates: end: 20130823
  3. HOMERLIGHT [Concomitant]
     Dosage: 50 MG, 3X/DAY
     Route: 048
     Dates: end: 20130823
  4. SOFALCONE [Concomitant]
     Dosage: 0.5 G, 3X/DAY
     Route: 048
     Dates: end: 20130823

REACTIONS (1)
  - Renal failure [Recovered/Resolved]
